FAERS Safety Report 8987851 (Version 2)
Quarter: 2013Q1

REPORT INFORMATION
  Report Type: Spontaneous
  Country: US (occurrence: US)
  Receive Date: 20121227
  Receipt Date: 20130102
  Transmission Date: 20140127
  Serious: Yes (Hospitalization)
  Sender: FDA-Public Use
  Company Number: US-GLAXOSMITHKLINE-A1006277A

PATIENT
  Sex: Female

DRUGS (4)
  1. ALLI [Suspect]
     Indication: WEIGHT DECREASED
     Dosage: 60MG UNKNOWN
     Route: 048
     Dates: start: 2009, end: 201210
  2. LISINOPRIL [Concomitant]
  3. ESTROGEN [Concomitant]
     Route: 030
  4. MULTIVITAMINS [Concomitant]

REACTIONS (4)
  - Acute hepatic failure [Recovering/Resolving]
  - Hepatic encephalopathy [Unknown]
  - Liver transplant [Unknown]
  - Hepatectomy [Unknown]
